FAERS Safety Report 6182726-5 (Version None)
Quarter: 2009Q2

REPORT INFORMATION
  Report Type: 
  Country: None (occurrence: None)
  Receive Date: 20090507
  Receipt Date: 20090422
  Transmission Date: 20091009
  Serious: Yes (Other)
  Sender: FDA-Public Use
  Company Number: DE-GENENTECH-278938

PATIENT
  Age: 75 Year
  Sex: Female

DRUGS (3)
  1. LUCENTIS [Suspect]
     Indication: DETACHMENT OF RETINAL PIGMENT EPITHELIUM
     Dosage: UNK
     Route: 031
     Dates: start: 20071122
  2. LUCENTIS [Suspect]
     Dosage: UNK
     Route: 031
     Dates: start: 20071220
  3. LUCENTIS [Suspect]
     Dosage: UNK
     Route: 031
     Dates: start: 20080116

REACTIONS (1)
  - VISUAL ACUITY REDUCED [None]
